FAERS Safety Report 4445550-7 (Version None)
Quarter: 2004Q3

REPORT INFORMATION
  Report Type: 
  Country: None (occurrence: None)
  Receive Date: 20040908
  Receipt Date: 20040908
  Transmission Date: 20050211
  Serious: Yes (Other)
  Sender: FDA-Public Use
  Company Number: None

PATIENT
  Age: 55 Year
  Sex: Male
  Weight: 90.7194 kg

DRUGS (2)
  1. ADDERALL 10 [Suspect]
     Indication: ATTENTION DEFICIT/HYPERACTIVITY DISORDER
     Dosage: 2 EA   TWICE/DAY   ORAL
     Route: 048
  2. ADDERALL 10 [Suspect]
     Indication: PERSONALITY DISORDER
     Dosage: 2 EA   TWICE/DAY   ORAL
     Route: 048

REACTIONS (7)
  - BLOOD PRESSURE DIASTOLIC INCREASED [None]
  - DRUG EFFECT DECREASED [None]
  - DYSGEUSIA [None]
  - IMPAIRED WORK ABILITY [None]
  - INFLUENZA [None]
  - PHARMACEUTICAL PRODUCT COMPLAINT [None]
  - SOMNOLENCE [None]
